FAERS Safety Report 5909834-5 (Version None)
Quarter: 2008Q4

REPORT INFORMATION
  Report Type: 
  Country: None (occurrence: None)
  Receive Date: 20081007
  Receipt Date: 20080925
  Transmission Date: 20090506
  Serious: Yes (Other)
  Sender: FDA-Public Use
  Company Number: GB-BRISTOL-MYERS SQUIBB COMPANY-14357842

PATIENT
  Age: 60 Year
  Sex: Male

DRUGS (1)
  1. LYSODREN [Suspect]
     Indication: ADRENAL CARCINOMA
     Dosage: STARTED AS 5G/D REDUCED TO 3G/D AND REDUCED TO 2G/D.

REACTIONS (13)
  - ABNORMAL DREAMS [None]
  - AMNESIA [None]
  - ASTHENIA [None]
  - DISTURBANCE IN ATTENTION [None]
  - DYSPNOEA [None]
  - EXERCISE TOLERANCE DECREASED [None]
  - HYPOGONADISM [None]
  - HYPOTRICHOSIS [None]
  - LOSS OF LIBIDO [None]
  - MUSCLE ATROPHY [None]
  - MYOCLONUS [None]
  - PRURITUS [None]
  - SOMNOLENCE [None]
